FAERS Safety Report 10333605 (Version 28)
Quarter: 2017Q2

REPORT INFORMATION
  Report Type: Report from Study
  Country: TR (occurrence: TR)
  Receive Date: 20140723
  Receipt Date: 20170426
  Transmission Date: 20170829
  Serious: Yes (Death, Hospitalization)
  Sender: FDA-Public Use
  Company Number: TR-ROCHE-1437033

PATIENT
  Age: 63 Year
  Sex: Male
  Weight: 55 kg

DRUGS (44)
  1. CHLORAMBUCIL [Suspect]
     Active Substance: CHLORAMBUCIL
     Indication: CHRONIC LYMPHOCYTIC LEUKAEMIA
     Dosage: DATE OF MOST RECENT DOSE OF CHLORAMBUCIL PRIOR TO SAE FEBRILE NEUTROPENIA ON 08/JUL/2014?MOST RECENT
     Route: 048
     Dates: start: 20140708, end: 20140708
  2. DEXAMETHASONE. [Concomitant]
     Active Substance: DEXAMETHASONE
     Route: 042
     Dates: start: 20140717, end: 20140717
  3. PARACETAMOL [Concomitant]
     Active Substance: ACETAMINOPHEN
     Route: 048
     Dates: start: 20140709, end: 20140709
  4. PARACETAMOL [Concomitant]
     Active Substance: ACETAMINOPHEN
     Route: 048
     Dates: start: 20140715, end: 20140715
  5. PARACETAMOL [Concomitant]
     Active Substance: ACETAMINOPHEN
     Route: 048
     Dates: start: 20140912, end: 20140912
  6. IOVERSOL [Concomitant]
     Active Substance: IOVERSOL
     Dosage: SUPPLEMENT
     Route: 042
     Dates: start: 20140612, end: 20140612
  7. OBINUTUZUMAB [Suspect]
     Active Substance: OBINUTUZUMAB
     Dosage: CYCLE 1 DAY 2
     Route: 042
     Dates: start: 20140709, end: 20140709
  8. OBINUTUZUMAB [Suspect]
     Active Substance: OBINUTUZUMAB
     Dosage: C3D1
     Route: 042
     Dates: start: 20140912, end: 20140912
  9. METHYLPREDNISOLONE. [Concomitant]
     Active Substance: METHYLPREDNISOLONE
     Indication: PROPHYLAXIS
     Route: 042
     Dates: start: 20140708, end: 20140708
  10. PARACETAMOL [Concomitant]
     Active Substance: ACETAMINOPHEN
     Route: 048
     Dates: start: 20140819, end: 20140819
  11. ERYTHROCYTE TRANSFUSIONS [Concomitant]
     Dosage: TOTAL DOSE: 1 UNIT
     Route: 042
     Dates: start: 20140903, end: 20140905
  12. OBINUTUZUMAB [Suspect]
     Active Substance: OBINUTUZUMAB
     Dosage: MOST RECENT DOSE ON 19/AUG/2014, CYCLE 2 DAY 1
     Route: 042
     Dates: start: 20140819, end: 20140819
  13. CHLORAMBUCIL [Suspect]
     Active Substance: CHLORAMBUCIL
     Dosage: C4D15?DRUG PERMANENTLY STOPPED ON 15/DEC/2014
     Route: 048
     Dates: start: 20141118, end: 20141118
  14. DEXAMETHASONE. [Concomitant]
     Active Substance: DEXAMETHASONE
     Route: 042
     Dates: start: 20141103, end: 20141103
  15. METHYLPREDNISOLONE. [Concomitant]
     Active Substance: METHYLPREDNISOLONE
     Route: 042
     Dates: start: 20140709, end: 20140709
  16. METHYLPREDNISOLONE. [Concomitant]
     Active Substance: METHYLPREDNISOLONE
     Route: 042
     Dates: start: 20140722, end: 20140722
  17. METHYLPREDNISOLONE. [Concomitant]
     Active Substance: METHYLPREDNISOLONE
     Route: 042
     Dates: start: 20140819, end: 20140819
  18. ALLOPURINOL. [Concomitant]
     Active Substance: ALLOPURINOL
     Route: 048
     Dates: start: 20140707, end: 20140714
  19. PARACETAMOL [Concomitant]
     Active Substance: ACETAMINOPHEN
     Route: 048
     Dates: start: 20140717, end: 20140717
  20. OBINUTUZUMAB [Suspect]
     Active Substance: OBINUTUZUMAB
     Indication: CHRONIC LYMPHOCYTIC LEUKAEMIA
     Dosage: CYCLE 1 DAY 1, DATE OF MOST RECENT DOSE OF OBINUTUZUMAB PRIOR TO SAE FEBRILE NEUTROPENIA ON 15/JUL/2
     Route: 042
     Dates: start: 20140708, end: 20140708
  21. OBINUTUZUMAB [Suspect]
     Active Substance: OBINUTUZUMAB
     Dosage: C4D1?DRUG PERMANENTLY STOPPED ON 15/DEC/2014
     Route: 042
     Dates: start: 20141103, end: 20141103
  22. CHLORAMBUCIL [Suspect]
     Active Substance: CHLORAMBUCIL
     Dosage: C3D1
     Route: 048
     Dates: start: 20140912, end: 20140912
  23. DEXAMETHASONE. [Concomitant]
     Active Substance: DEXAMETHASONE
     Indication: PROPHYLAXIS
     Route: 042
     Dates: start: 20140708, end: 20140708
  24. DEXAMETHASONE. [Concomitant]
     Active Substance: DEXAMETHASONE
     Route: 042
     Dates: start: 20140819, end: 20140819
  25. ADRENALIN [Concomitant]
     Active Substance: EPINEPHRINE
     Indication: CARDIAC ARREST
     Route: 042
     Dates: start: 20141220, end: 20141221
  26. OBINUTUZUMAB [Suspect]
     Active Substance: OBINUTUZUMAB
     Dosage: CYCLE 1 DAY 8
     Route: 042
     Dates: start: 20140715, end: 20140715
  27. CHLORAMBUCIL [Suspect]
     Active Substance: CHLORAMBUCIL
     Route: 048
     Dates: start: 20140722, end: 20140722
  28. CHLORAMBUCIL [Suspect]
     Active Substance: CHLORAMBUCIL
     Dosage: C3D2
     Route: 048
     Dates: start: 20140927, end: 20140927
  29. INSULIN HUMAN NPH [Concomitant]
     Route: 058
     Dates: start: 2009
  30. DEXAMETHASONE. [Concomitant]
     Active Substance: DEXAMETHASONE
     Route: 042
     Dates: start: 20140709, end: 20140709
  31. DEXAMETHASONE. [Concomitant]
     Active Substance: DEXAMETHASONE
     Route: 042
     Dates: start: 20140715, end: 20140715
  32. METHYLPREDNISOLONE. [Concomitant]
     Active Substance: METHYLPREDNISOLONE
     Route: 042
     Dates: start: 20140715, end: 20140715
  33. METHYLPREDNISOLONE. [Concomitant]
     Active Substance: METHYLPREDNISOLONE
     Route: 042
     Dates: start: 20140912, end: 20140912
  34. PARACETAMOL [Concomitant]
     Active Substance: ACETAMINOPHEN
     Route: 048
     Dates: start: 20141103, end: 20141103
  35. OBINUTUZUMAB [Suspect]
     Active Substance: OBINUTUZUMAB
     Dosage: C1D15
     Route: 042
     Dates: start: 20140722, end: 20140722
  36. DEXAMETHASONE. [Concomitant]
     Active Substance: DEXAMETHASONE
     Route: 042
     Dates: start: 20140722, end: 20140722
  37. METHYLPREDNISOLONE. [Concomitant]
     Active Substance: METHYLPREDNISOLONE
     Route: 042
     Dates: start: 20141103, end: 20141103
  38. PARACETAMOL [Concomitant]
     Active Substance: ACETAMINOPHEN
     Indication: PROPHYLAXIS
     Route: 048
     Dates: start: 20140708, end: 20140708
  39. PARACETAMOL [Concomitant]
     Active Substance: ACETAMINOPHEN
     Route: 048
     Dates: start: 20140722, end: 20140722
  40. CHLORAMBUCIL [Suspect]
     Active Substance: CHLORAMBUCIL
     Route: 048
     Dates: start: 20140819, end: 20140819
  41. CHLORAMBUCIL [Suspect]
     Active Substance: CHLORAMBUCIL
     Route: 048
     Dates: start: 20140902, end: 20140902
  42. CHLORAMBUCIL [Suspect]
     Active Substance: CHLORAMBUCIL
     Dosage: C4D1
     Route: 048
     Dates: start: 20141103, end: 20141103
  43. DEXAMETHASONE. [Concomitant]
     Active Substance: DEXAMETHASONE
     Route: 042
     Dates: start: 20140912, end: 20140912
  44. DIATRIZOIC ACID [Concomitant]
     Active Substance: DIATRIZOIC ACID
     Dosage: SUPPLEMENT
     Route: 048
     Dates: start: 20140611, end: 20140611

REACTIONS (3)
  - Neutropenia [Not Recovered/Not Resolved]
  - Pneumonia [Fatal]
  - Febrile neutropenia [Recovered/Resolved]

NARRATIVE: CASE EVENT DATE: 20140717
